FAERS Safety Report 9700652 (Version 1)
Quarter: 2013Q4

REPORT INFORMATION
  Report Type: Spontaneous
  Country: US (occurrence: US)
  Receive Date: 20131121
  Receipt Date: 20131121
  Transmission Date: 20140711
  Serious: Yes (Other)
  Sender: FDA-Public Use
  Company Number: US-JNJFOC-20131108712

PATIENT
  Age: 55 Year
  Sex: Female

DRUGS (2)
  1. REMICADE [Suspect]
     Indication: CROHN^S DISEASE
     Dosage: FIRST LOADING DOSE
     Route: 042
  2. REMICADE [Suspect]
     Indication: CROHN^S DISEASE
     Route: 042

REACTIONS (5)
  - Joint swelling [Not Recovered/Not Resolved]
  - Lupus-like syndrome [Unknown]
  - Arthralgia [Not Recovered/Not Resolved]
  - Antinuclear antibody positive [Unknown]
  - Double stranded DNA antibody positive [Unknown]
